FAERS Safety Report 9425466 (Version 2)
Quarter: 2013Q3

REPORT INFORMATION
  Report Type: Spontaneous
  Country: US (occurrence: US)
  Receive Date: 20130729
  Receipt Date: 20130906
  Transmission Date: 20140515
  Serious: Yes (Other)
  Sender: FDA-Public Use
  Company Number: US-009507513-1307USA013641

PATIENT
  Age: 20 Year
  Sex: Female
  Weight: 79.82 kg

DRUGS (3)
  1. IMPLANON [Suspect]
     Indication: CONTRACEPTION
     Dosage: 1 ROD, 3 YEARS
     Route: 059
     Dates: start: 20111102
  2. EMSAM [Concomitant]
  3. CYMBALTA [Concomitant]

REACTIONS (5)
  - Endometriosis ablation [Unknown]
  - Ovarian cystectomy [Unknown]
  - Endometriosis [Recovered/Resolved]
  - Ovarian cyst [Recovered/Resolved]
  - Endometriosis [Not Recovered/Not Resolved]
